FAERS Safety Report 8224106-4 (Version None)
Quarter: 2012Q1

REPORT INFORMATION
  Report Type: 
  Country: None (occurrence: None)
  Receive Date: 20120321
  Receipt Date: 20120319
  Transmission Date: 20120608
  Serious: Yes (Other)
  Sender: FDA-Public Use
  Company Number: US-PFIZER INC-2012071458

PATIENT
  Sex: Male
  Weight: 70 kg

DRUGS (3)
  1. LIPITOR [Suspect]
     Dosage: 40 MG, 1X/DAY
     Route: 048
     Dates: start: 20110501
  2. LIPITOR [Suspect]
     Indication: BLOOD CHOLESTEROL INCREASED
     Dosage: 20 MG, 1X/DAY
     Route: 048
     Dates: start: 20090101, end: 20110501
  3. ZETIA [Concomitant]
     Indication: BLOOD CHOLESTEROL INCREASED
     Dosage: UNK

REACTIONS (4)
  - ACCIDENT [None]
  - SWELLING [None]
  - ARTERIAL RUPTURE [None]
  - PRURITUS [None]
